FAERS Safety Report 24578483 (Version 1)
Quarter: 2024Q4

REPORT INFORMATION
  Report Type: Spontaneous
  Country: US (occurrence: US)
  Receive Date: 20241105
  Receipt Date: 20241105
  Transmission Date: 20250115
  Serious: Yes (Other)
  Sender: NOVO NORDISK
  Company Number: US-NOVOPROD-1309231

PATIENT
  Age: 72 Year
  Sex: Female

DRUGS (4)
  1. OZEMPIC [Suspect]
     Active Substance: SEMAGLUTIDE
     Indication: Type 2 diabetes mellitus
     Dosage: 0.25 MG
     Route: 058
  2. OZEMPIC [Suspect]
     Active Substance: SEMAGLUTIDE
     Dosage: UNK
     Route: 058
  3. OZEMPIC [Suspect]
     Active Substance: SEMAGLUTIDE
     Dosage: 2 MG
     Route: 058
     Dates: start: 20240404
  4. OZEMPIC [Suspect]
     Active Substance: SEMAGLUTIDE
     Dosage: 0.50 MG
     Route: 058

REACTIONS (13)
  - Diplopia [Unknown]
  - Insomnia [Unknown]
  - Dizziness postural [Unknown]
  - Skin burning sensation [Unknown]
  - Dry mouth [Unknown]
  - Breath odour [Unknown]
  - Hot flush [Unknown]
  - Dysgeusia [Unknown]
  - Fatigue [Unknown]
  - Nausea [Unknown]
  - Abdominal pain upper [Unknown]
  - Constipation [Unknown]
  - Diabetes mellitus inadequate control [Unknown]

NARRATIVE: CASE EVENT DATE: 20240501
